FAERS Safety Report 24772460 (Version 1)
Quarter: 2024Q4

REPORT INFORMATION
  Report Type: Spontaneous
  Country: US (occurrence: US)
  Receive Date: 20241224
  Receipt Date: 20241224
  Transmission Date: 20250114
  Serious: Yes (Hospitalization, Other)
  Sender: LABORATOIRES SERB
  Company Number: US-SERB S.A.S.-2167710

PATIENT
  Age: 56 Year
  Sex: Male

DRUGS (1)
  1. CROFAB [Suspect]
     Active Substance: AGKISTRODON PISCIVORUS IMMUNE FAB ANTIVENIN (OVINE)\CROTALUS ADAMANTEUS IMMUNE FAB ANTIVENIN (OVINE)
     Indication: Snake bite

REACTIONS (2)
  - Skin necrosis [Recovering/Resolving]
  - Blood fibrinogen increased [Recovering/Resolving]
